FAERS Safety Report 10891599 (Version 1)
Quarter: 2015Q1

REPORT INFORMATION
  Report Type: Spontaneous
  Country: JP (occurrence: JP)
  Receive Date: 20150306
  Receipt Date: 20150306
  Transmission Date: 20150721
  Serious: Yes (Hospitalization, Other)
  Sender: FDA-Public Use
  Company Number: JP-GLAXOSMITHKLINE-JP2015JPN014772

PATIENT
  Age: 40 Year
  Sex: Female
  Weight: 49 kg

DRUGS (16)
  1. YOKUKANSAN [Concomitant]
     Active Substance: HERBALS
  2. LIMAS [Concomitant]
     Active Substance: LITHIUM CARBONATE
  3. BENZALIN [Concomitant]
     Active Substance: NITRAZEPAM
  4. TRAZODONE [Concomitant]
     Active Substance: TRAZODONE HYDROCHLORIDE
  5. HALRACK [Concomitant]
     Active Substance: TRIAZOLAM
  6. LAMICTAL [Suspect]
     Active Substance: LAMOTRIGINE
     Indication: BIPOLAR DISORDER
     Dosage: 25 MG, QOD
     Route: 048
     Dates: start: 20141121, end: 20141127
  7. VEGETAMIN-A [Concomitant]
     Active Substance: CHLORPROMAZINE\PROMETHAZINE
  8. LEXOTAN [Concomitant]
     Active Substance: BROMAZEPAM
  9. MAGMITT [Concomitant]
     Active Substance: MAGNESIUM OXIDE
  10. LAMICTAL [Suspect]
     Active Substance: LAMOTRIGINE
     Dosage: 25 MG, QD
     Route: 048
     Dates: start: 20141128, end: 20141204
  11. LAMICTAL [Suspect]
     Active Substance: LAMOTRIGINE
     Dosage: 50 MG, 1D
     Route: 048
     Dates: start: 20141205, end: 20141211
  12. LULLAN [Concomitant]
     Active Substance: PEROSPIRONE HYDROCHLORIDE
     Dates: start: 20141215
  13. RIVOTRIL [Concomitant]
     Active Substance: CLONAZEPAM
  14. TAGAMET [Concomitant]
     Active Substance: CIMETIDINE
  15. UNKNOWN DRUG [Concomitant]
     Active Substance: UNSPECIFIED INGREDIENT
  16. LAMICTAL [Suspect]
     Active Substance: LAMOTRIGINE
     Dosage: 200 MG, 1D
     Route: 048
     Dates: start: 20141212, end: 20141218

REACTIONS (4)
  - Pruritus [Recovering/Resolving]
  - Drug reaction with eosinophilia and systemic symptoms [Recovering/Resolving]
  - Face oedema [Recovering/Resolving]
  - Rash generalised [Recovering/Resolving]

NARRATIVE: CASE EVENT DATE: 20141212
